FAERS Safety Report 13346586 (Version 1)
Quarter: 2017Q1

REPORT INFORMATION
  Report Type: Spontaneous
  Country: FR (occurrence: FR)
  Receive Date: 20170317
  Receipt Date: 20170317
  Transmission Date: 20170428
  Serious: Yes (Hospitalization, Other)
  Sender: FDA-Public Use
  Company Number: FR-PFIZER INC-2017109939

PATIENT
  Age: 66 Year
  Sex: Male

DRUGS (4)
  1. CEFAZOLINE [Suspect]
     Active Substance: CEFAZOLIN SODIUM
     Dosage: UNK
     Dates: start: 20170217, end: 20170219
  2. ORBENINE [Suspect]
     Active Substance: CLOXACILLIN SODIUM
     Dosage: 2 G, ONCE EVERY 6 HOURS
     Route: 042
     Dates: start: 20170203, end: 20170216
  3. DALACINE [Suspect]
     Active Substance: CLINDAMYCIN HYDROCHLORIDE
     Dosage: 600 MG, ONCE EVERY 6 HOURS
     Route: 042
     Dates: start: 20170203, end: 20170219
  4. AUGMENTIN [Suspect]
     Active Substance: AMOXICILLIN\CLAVULANATE POTASSIUM
     Dosage: 2 G, 3X/DAY
     Route: 048
     Dates: start: 20170219

REACTIONS (4)
  - Face oedema [Recovering/Resolving]
  - Urticaria [Recovering/Resolving]
  - Glomerulonephritis [Not Recovered/Not Resolved]
  - Eosinophilia [Unknown]

NARRATIVE: CASE EVENT DATE: 20170213
